FAERS Safety Report 5748677-2 (Version None)
Quarter: 2008Q2

REPORT INFORMATION
  Report Type: 
  Country: None (occurrence: None)
  Receive Date: 20080522
  Receipt Date: 20080508
  Transmission Date: 20081010
  Serious: Yes (Life-Threatening, Other)
  Sender: FDA-Public Use
  Company Number: ALK_00578_2008

PATIENT
  Sex: Male
  Weight: 91.6266 kg

DRUGS (1)
  1. VIVITROL [Suspect]
     Indication: ALCOHOLISM
     Dosage: 380 MG 1X/MONTH INTRAMUSCULAR
     Route: 030
     Dates: start: 20080318, end: 20080401

REACTIONS (5)
  - ALCOHOL USE [None]
  - HOMICIDAL IDEATION [None]
  - MUSCULAR WEAKNESS [None]
  - POISONING [None]
  - SUICIDAL IDEATION [None]
